FAERS Safety Report 5327156-0 (Version None)
Quarter: 2007Q2

REPORT INFORMATION
  Report Type: 
  Country: None (occurrence: None)
  Receive Date: 20070514
  Receipt Date: 20070504
  Transmission Date: 20071010
  Serious: Yes (Hospitalization, Other)
  Sender: FDA-Public Use
  Company Number: 163-20785-07040237

PATIENT
  Age: 78 Year
  Sex: Male

DRUGS (1)
  1. THALOMID [Suspect]
     Indication: MULTIPLE MYELOMA
     Dosage: 150 MG, 3IJ 1 D, ORAL
     Route: 048
     Dates: start: 20070105

REACTIONS (3)
  - GASTRIC CANCER [None]
  - OESOPHAGEAL CARCINOMA [None]
  - TRANSIENT ISCHAEMIC ATTACK [None]
